FAERS Safety Report 6820078-5 (Version None)
Quarter: 2010Q3

REPORT INFORMATION
  Report Type: 
  Country: None (occurrence: None)
  Receive Date: 20100707
  Receipt Date: 20100630
  Transmission Date: 20110219
  Serious: Yes (Other)
  Sender: FDA-Public Use
  Company Number: B0663391A

PATIENT
  Sex: Male
  Weight: 58 kg

DRUGS (17)
  1. ARRANON [Suspect]
     Dosage: 650MGM2 PER DAY
     Route: 042
     Dates: start: 20090824, end: 20090828
  2. DAUNOMYCIN [Concomitant]
     Indication: NEOPLASM MALIGNANT
     Route: 042
     Dates: start: 20090814, end: 20090814
  3. DAUNOMYCIN [Concomitant]
     Route: 042
     Dates: start: 20090816, end: 20090816
  4. DAUNOMYCIN [Concomitant]
     Route: 042
     Dates: start: 20090821, end: 20090821
  5. ENDOXAN [Concomitant]
     Indication: NEOPLASM MALIGNANT
     Dates: start: 20090818, end: 20090818
  6. CYTARABINE [Concomitant]
     Indication: NEOPLASM MALIGNANT
     Dosage: 100MGM2 PER DAY
     Route: 042
     Dates: start: 20090902, end: 20090904
  7. CYTARABINE [Concomitant]
     Dosage: 100MGM2 PER DAY
     Route: 042
     Dates: start: 20090909, end: 20090911
  8. PREDONINE [Concomitant]
     Dates: start: 20090806, end: 20090813
  9. DECADRON [Concomitant]
     Dates: start: 20090814, end: 20090820
  10. DECADRON [Concomitant]
     Dates: start: 20090824, end: 20090918
  11. FIRSTCIN [Concomitant]
     Indication: INFECTION PROPHYLAXIS
     Route: 042
     Dates: start: 20090806, end: 20090818
  12. FIRSTCIN [Concomitant]
     Route: 042
     Dates: start: 20090902, end: 20090904
  13. BROACT [Concomitant]
     Indication: INFECTION PROPHYLAXIS
     Route: 042
     Dates: start: 20090819, end: 20090901
  14. TARGOCID [Concomitant]
     Indication: FEBRILE NEUTROPENIA
     Route: 042
     Dates: start: 20090903, end: 20090916
  15. AMIKACIN SULFATE [Concomitant]
     Indication: FEBRILE NEUTROPENIA
     Route: 042
     Dates: start: 20090904, end: 20090910
  16. AMIKACIN SULFATE [Concomitant]
     Dates: start: 20090914, end: 20090918
  17. ORGARAN [Concomitant]
     Indication: PROPHYLAXIS
     Route: 042
     Dates: start: 20090806, end: 20090919

REACTIONS (3)
  - ILLUSION [None]
  - PANCYTOPENIA [None]
  - RESTLESSNESS [None]
